FAERS Safety Report 14874869 (Version 3)
Quarter: 2019Q2

REPORT INFORMATION
  Report Type: Spontaneous
  Country: US (occurrence: US)
  Receive Date: 20180510
  Receipt Date: 20190627
  Transmission Date: 20190711
  Serious: Yes (Hospitalization, Other)
  Sender: FDA-Public Use
  Company Number: US-PFIZER INC-2018190479

PATIENT
  Age: 54 Year
  Sex: Female
  Weight: 116 kg

DRUGS (6)
  1. PREMARIN [Suspect]
     Active Substance: ESTROGENS, CONJUGATED
     Indication: VULVOVAGINAL DRYNESS
     Dosage: 20 MG, 1X/DAY (20 MG ONCE A DAY 30 G )
     Route: 067
     Dates: start: 20130326, end: 20150914
  2. PREMARIN [Suspect]
     Active Substance: ESTROGENS, CONJUGATED
     Dosage: 2 G, DAILY (DAILY FOR 3 WEEKS FOR TWICE A WEEK)
     Route: 067
     Dates: start: 20150910, end: 20150914
  3. PREMARIN [Suspect]
     Active Substance: ESTROGENS, CONJUGATED
     Dosage: 2 G, DAILY (DAILY FOR 3 WEEKS FOR TWICE A WEEK)
     Route: 067
     Dates: start: 20140914
  4. PREMARIN [Suspect]
     Active Substance: ESTROGENS, CONJUGATED
     Dosage: 2 G, DAILY (DAILY FOR 3 WEEKS FOR TWICE A WEEK)
     Route: 067
     Dates: start: 20120620
  5. PREMARIN [Suspect]
     Active Substance: ESTROGENS, CONJUGATED
     Dosage: 2 G, DAILY (DAILY FOR 3 WEEKS FOR TWICE A WEEK)
     Route: 067
     Dates: start: 20131107
  6. PREMARIN [Suspect]
     Active Substance: ESTROGENS, CONJUGATED
     Indication: MENOPAUSE
     Dosage: UNK
     Dates: start: 2014, end: 2016

REACTIONS (2)
  - Vaginal haemorrhage [Unknown]
  - Uterine cancer [Unknown]
